FAERS Safety Report 8186524-2 (Version None)
Quarter: 2012Q1

REPORT INFORMATION
  Report Type: 
  Country: None (occurrence: None)
  Receive Date: 20120302
  Receipt Date: 20120302
  Transmission Date: 20120608
  Serious: Yes (Death, Disabling)
  Sender: FDA-Public Use
  Company Number: None

PATIENT
  Age: 88 Year
  Sex: Female
  Weight: 52.1637 kg

DRUGS (3)
  1. CITALOPRAM HYDROBROMIDE [Suspect]
     Indication: DEPRESSION
     Dosage: CITALOPRAM 20MG 1/2 DAILY
     Dates: start: 20111110
  2. HYDROCODONE BITARTRATE + ACETAMINOPHEN [Suspect]
  3. MELOXICAM [Suspect]
     Indication: ARTHRITIS
     Dosage: 7.5 1 DAILY
     Route: 048
     Dates: start: 20111124

REACTIONS (1)
  - HAEMORRHAGIC STROKE [None]
